FAERS Safety Report 5709544-3 (Version None)
Quarter: 2008Q2

REPORT INFORMATION
  Report Type: 
  Country: None (occurrence: None)
  Receive Date: 20080418
  Receipt Date: 20080407
  Transmission Date: 20081010
  Serious: Yes (Other)
  Sender: FDA-Public Use
  Company Number: US-MERCK-0803USA05023

PATIENT
  Age: 6 Year
  Sex: Male

DRUGS (8)
  1. SINGULAIR [Suspect]
     Indication: HYPERSENSITIVITY
     Route: 048
     Dates: end: 20080328
  2. SINGULAIR [Suspect]
     Route: 048
  3. SINGULAIR [Suspect]
     Indication: ASTHMA
     Route: 048
     Dates: end: 20080328
  4. SINGULAIR [Suspect]
     Route: 048
  5. ZYRTEC [Concomitant]
     Route: 065
  6. [THERAPY UNSPECIFIED] [Concomitant]
  7. ALLEGRA D 24 HOUR [Concomitant]
     Route: 065
  8. ALLERGENIC EXTRACT [Concomitant]
     Route: 065

REACTIONS (2)
  - MOOD SWINGS [None]
  - SUICIDAL IDEATION [None]
